FAERS Safety Report 12375542 (Version 2)
Quarter: 2016Q2

REPORT INFORMATION
  Report Type: Spontaneous
  Country: IT (occurrence: IT)
  Receive Date: 20160517
  Receipt Date: 20160525
  Transmission Date: 20160815
  Serious: Yes (Hospitalization)
  Sender: FDA-Public Use
  Company Number: IT-PFIZER INC-2016252856

PATIENT
  Age: 82 Year
  Sex: Male

DRUGS (12)
  1. TRITTICO [Suspect]
     Active Substance: TRAZODONE HYDROCHLORIDE
     Indication: DEPRESSION
     Dosage: 10 GTT, DAILY
     Route: 048
  2. INSULINA LISPRO [Concomitant]
     Indication: DIABETES MELLITUS
  3. INSULIN GLARGINE [Concomitant]
     Active Substance: INSULIN GLARGINE
     Indication: DIABETES MELLITUS
  4. TAVOR (LORAZEPAM) [Suspect]
     Active Substance: LORAZEPAM
     Dosage: 1 MG, DAILY
     Route: 048
     Dates: start: 20160401, end: 20160404
  5. PANTOPRAZOLE [Concomitant]
     Active Substance: PANTOPRAZOLE SODIUM
     Dosage: 40 MG, UNK
     Route: 048
  6. DIGOSSINA [Concomitant]
     Indication: CARDIAC FAILURE
  7. GABAPENTIN. [Suspect]
     Active Substance: GABAPENTIN
     Indication: DIABETIC NEUROPATHY
     Dosage: 200 MG, DAILY
     Route: 048
  8. TARGIN [Suspect]
     Active Substance: NALOXONE HYDROCHLORIDE\OXYCODONE HYDROCHLORIDE
     Indication: PAIN
     Dosage: 2 DF, DAILY
     Route: 048
  9. COUMADIN [Concomitant]
     Active Substance: WARFARIN SODIUM
     Indication: ATRIAL FIBRILLATION
     Dosage: 5 MG, UNK
     Route: 048
  10. OMNIC [Concomitant]
     Active Substance: TAMSULOSIN HYDROCHLORIDE
     Indication: BENIGN PROSTATIC HYPERPLASIA
     Dosage: 0.4 MG, UNK
     Route: 048
  11. FUROSEMIDE. [Concomitant]
     Active Substance: FUROSEMIDE
     Indication: HYPERTENSION
     Dosage: 75 MG, UNK
     Route: 048
  12. BISOPROLOL FUMARATE. [Concomitant]
     Active Substance: BISOPROLOL FUMARATE
     Indication: HYPERTENSION
     Dosage: 2.5 MG, UNK
     Route: 048

REACTIONS (3)
  - Hypercapnia [Recovering/Resolving]
  - Sopor [Recovering/Resolving]
  - Respiratory depression [Recovering/Resolving]

NARRATIVE: CASE EVENT DATE: 20160404
